FAERS Safety Report 15478447 (Version 8)
Quarter: 2019Q2

REPORT INFORMATION
  Report Type: Report from Study
  Country: US (occurrence: US)
  Receive Date: 20181009
  Receipt Date: 20190401
  Transmission Date: 20190711
  Serious: Yes (Hospitalization, Other)
  Sender: FDA-Public Use
  Company Number: US-JNJFOC-20181007331

PATIENT
  Age: 78 Year
  Sex: Male

DRUGS (16)
  1. COLCHICINE. [Concomitant]
     Active Substance: COLCHICINE
  2. METFORMIN [Concomitant]
     Active Substance: METFORMIN HYDROCHLORIDE
  3. ALLOPURINOL. [Concomitant]
     Active Substance: ALLOPURINOL
  4. LOSARTAN. [Concomitant]
     Active Substance: LOSARTAN
  5. LATANOPROST. [Concomitant]
     Active Substance: LATANOPROST
  6. IMBRUVICA [Suspect]
     Active Substance: IBRUTINIB
     Indication: CHRONIC LYMPHOCYTIC LEUKAEMIA
     Dosage: 420 MG, QD
     Route: 048
     Dates: start: 20180504, end: 20180901
  7. IMBRUVICA [Concomitant]
     Active Substance: IBRUTINIB
     Indication: CHRONIC LYMPHOCYTIC LEUKAEMIA
     Dosage: 420 MG, QD
     Route: 048
     Dates: start: 20150806, end: 20180503
  8. IMBRUVICA [Suspect]
     Active Substance: IBRUTINIB
     Indication: CHRONIC LYMPHOCYTIC LEUKAEMIA
     Route: 048
     Dates: start: 2018, end: 20181231
  9. ATORVASTATIN [Concomitant]
     Active Substance: ATORVASTATIN
  10. ASPIRIN. [Concomitant]
     Active Substance: ASPIRIN
  11. IMBRUVICA [Concomitant]
     Active Substance: IBRUTINIB
     Indication: CHRONIC LYMPHOCYTIC LEUKAEMIA
     Dosage: 420 MG, QD
     Route: 048
     Dates: start: 20170130, end: 20180503
  12. PROCHLORPERAZINE. [Concomitant]
     Active Substance: PROCHLORPERAZINE
  13. ISOSORBIDE. [Concomitant]
     Active Substance: ISOSORBIDE
  14. CENTRUM [Concomitant]
     Active Substance: VITAMINS
  15. PROVENTIL [Concomitant]
     Active Substance: ALBUTEROL
  16. FUROSEMIDE. [Concomitant]
     Active Substance: FUROSEMIDE

REACTIONS (9)
  - Fall [Unknown]
  - Gait inability [Not Recovered/Not Resolved]
  - Muscular weakness [Unknown]
  - Groin pain [Unknown]
  - Cerebrovascular accident [Unknown]
  - Coronary artery occlusion [Unknown]
  - Hypertension [Recovered/Resolved]
  - Head injury [Unknown]
  - Pain in extremity [Unknown]

NARRATIVE: CASE EVENT DATE: 201809
